FAERS Safety Report 5303365-1 (Version None)
Quarter: 2007Q2

REPORT INFORMATION
  Report Type: 
  Country: None (occurrence: None)
  Receive Date: 20070420
  Receipt Date: 20070413
  Transmission Date: 20071010
  Serious: Yes (Hospitalization)
  Sender: FDA-Public Use
  Company Number: 2007AC00659

PATIENT
  Age: 27150 Day
  Sex: Male
  Weight: 82 kg

DRUGS (2)
  1. CRESTOR [Suspect]
     Indication: HYPERCHOLESTEROLAEMIA
     Route: 048
     Dates: start: 20050910
  2. LIPITOR [Suspect]
     Indication: HYPERCHOLESTEROLAEMIA
     Dates: start: 20050910

REACTIONS (1)
  - PARESIS [None]
